FAERS Safety Report 20392122 (Version 3)
Quarter: 2022Q1

REPORT INFORMATION
  Report Type: Spontaneous
  Country: US (occurrence: US)
  Receive Date: 20220128
  Receipt Date: 20220204
  Transmission Date: 20220424
  Serious: Yes (Other)
  Sender: FDA-Public Use
  Company Number: US-LEO Pharma-340752

PATIENT
  Sex: Male

DRUGS (4)
  1. PICATO [Suspect]
     Active Substance: INGENOL MEBUTATE
     Indication: Actinic keratosis
     Dosage: DOSAGE : USED TWICE OVER A 2.5-YEAR PERIOD FOR TREATMENT ON THE FOREHEAD
     Route: 065
  2. PICATO [Suspect]
     Active Substance: INGENOL MEBUTATE
     Indication: Actinic keratosis
     Dosage: USED ON THE FOREHEAD AREA AND SIDEBURNS BOTH SIDES IN THE SUMMER OF 2019 AND SPRING OF 2020 FOR TWO
  3. RHOPRESSA [Concomitant]
     Active Substance: NETARSUDIL MESYLATE
     Indication: Borderline glaucoma
  4. COMBIGAN [Concomitant]
     Active Substance: BRIMONIDINE TARTRATE\TIMOLOL MALEATE
     Indication: Borderline glaucoma

REACTIONS (1)
  - Squamous cell carcinoma of skin [Unknown]
